FAERS Safety Report 6765124-2 (Version None)
Quarter: 2010Q2

REPORT INFORMATION
  Report Type: 
  Country: None (occurrence: None)
  Receive Date: 20100609
  Receipt Date: 20100609
  Transmission Date: 20101027
  Serious: No
  Sender: FDA-Public Use
  Company Number: None

PATIENT
  Sex: Female

DRUGS (1)
  1. OXYCODONE 5 MG TABLETS [Suspect]
     Dosage: #120 1 Q.I.D. PRN
     Dates: start: 20100301, end: 20100401

REACTIONS (3)
  - CONSTIPATION [None]
  - NAUSEA [None]
  - NO THERAPEUTIC RESPONSE [None]
